FAERS Safety Report 8012132-X (Version None)
Quarter: 2011Q4

REPORT INFORMATION
  Report Type: 
  Country: None (occurrence: None)
  Receive Date: 20111228
  Receipt Date: 20111220
  Transmission Date: 20120403
  Serious: Yes (Hospitalization)
  Sender: FDA-Public Use
  Company Number: PHHY2011JP111199

PATIENT
  Age: 69 Year
  Sex: Female

DRUGS (3)
  1. SELEGILINE [Suspect]
     Indication: PARKINSON'S DISEASE
     Dosage: 5 MG, DAILY
  2. ENTACAPONE [Suspect]
     Indication: PARKINSON'S DISEASE
     Dosage: 300 MG, DAILY
  3. LEVODOPA [Suspect]
     Indication: PARKINSON'S DISEASE
     Dosage: 900 MG, DAILY

REACTIONS (2)
  - GASTROINTESTINAL HYPOMOTILITY [None]
  - INFREQUENT BOWEL MOVEMENTS [None]
